FAERS Safety Report 23733679 (Version 3)
Quarter: 2024Q2

REPORT INFORMATION
  Report Type: Spontaneous
  Country: US (occurrence: US)
  Receive Date: 20240411
  Receipt Date: 20240609
  Transmission Date: 20240716
  Serious: No
  Sender: FDA-Public Use
  Company Number: US-002147023-NVSC2024US077073

PATIENT

DRUGS (2)
  1. COSENTYX [Suspect]
     Active Substance: SECUKINUMAB
     Indication: Plantar fasciitis
     Dosage: UNK
     Route: 065
  2. COSENTYX [Suspect]
     Active Substance: SECUKINUMAB
     Dosage: 300 MG, Q4W (X 300MG EVERY 4 WEEKS + MTX 25MG WEEKLY)
     Route: 065

REACTIONS (4)
  - Neuralgia [Unknown]
  - Arthralgia [Unknown]
  - Gait disturbance [Unknown]
  - Dysstasia [Unknown]
